FAERS Safety Report 5269126-7 (Version None)
Quarter: 2007Q1

REPORT INFORMATION
  Report Type: 
  Country: None (occurrence: None)
  Receive Date: 20070314
  Receipt Date: 20070228
  Transmission Date: 20070707
  Serious: Yes (Hospitalization)
  Sender: FDA-Public Use
  Company Number: 200603IM000212

PATIENT
  Age: 71 Year
  Sex: Male
  Weight: 94.5 kg

DRUGS (6)
  1. INTERFERON GAMMA-1B [Suspect]
     Indication: IDIOPATHIC PULMONARY FIBROSIS
     Dosage: 200 UG, TIW, SUBCUTANEOUS
     Route: 058
     Dates: start: 20040329, end: 20051202
  2. INTERFERON GAMMA-1B [Suspect]
     Indication: IDIOPATHIC PULMONARY FIBROSIS
     Dosage: 200 UG, TIW, SUBCUTANEOUS
     Route: 058
     Dates: start: 20051222
  3. LIPITOR [Concomitant]
  4. LISINOPRIL [Concomitant]
  5. IRON [Concomitant]
  6. TYLENOL [Concomitant]

REACTIONS (3)
  - POST PROCEDURAL COMPLICATION [None]
  - PROSTATE CANCER [None]
  - RESPIRATORY FAILURE [None]
